FAERS Safety Report 6932209-7 (Version None)
Quarter: 2010Q3

REPORT INFORMATION
  Report Type: 
  Country: None (occurrence: None)
  Receive Date: 20100819
  Receipt Date: 20100806
  Transmission Date: 20110219
  Serious: Yes (Death, Hospitalization, Other)
  Sender: FDA-Public Use
  Company Number: DE-ROCHE-712300

PATIENT
  Sex: Male
  Weight: 71 kg

DRUGS (13)
  1. AVASTIN [Suspect]
     Dosage: LAST REPORTED APPLICATION WAS ON 2 JUN 2010
     Route: 042
     Dates: start: 20100421
  2. XELODA [Concomitant]
     Dosage: LAST REPORTED APPLICATION ON 13 JUN 2010
     Route: 048
     Dates: start: 20100421
  3. RAMIPRIL [Concomitant]
     Route: 048
     Dates: start: 20040101
  4. TARGIN [Concomitant]
     Route: 048
     Dates: start: 20100401
  5. NOVAMINSULFON [Concomitant]
     Route: 048
     Dates: start: 20100401
  6. PANTOZOL [Concomitant]
     Indication: PROPHYLAXIS
  7. TIMOHEXAL [Concomitant]
     Indication: GLAUCOMA
     Dosage: BOTH EYES
  8. IRINOTECAN HCL [Concomitant]
     Dosage: LAST REPORTED APPLICATION ON 1 JUN 2010
  9. ALOXI [Concomitant]
     Dosage: DOSEFORM IS AN AMPULE, LAST REPORTED APPLICATION ON 1 JUN 2010
     Route: 042
  10. DEXAMETHASONE TAB [Concomitant]
     Dosage: LAST APPLICATION ON 1 JUN 2010
  11. ATROPIN [Concomitant]
     Dosage: LAST REPORTED APPLICATION ON 1 JUN 2010
     Route: 058
  12. LOPERAMIDE [Concomitant]
     Dosage: AS NEEDED, LAST REPORTED APPLICATION ON 1 JUN 2010
  13. CIPRO [Concomitant]
     Dosage: LAST REPORTED APPLICATION ON 1 JUN 2010

REACTIONS (8)
  - AORTIC DISSECTION [None]
  - AORTIC VALVE REPAIR [None]
  - ATELECTASIS [None]
  - CARDIAC ARREST [None]
  - HYPOKALAEMIA [None]
  - MALIGNANT NEOPLASM PROGRESSION [None]
  - PNEUMONIA BACTERIAL [None]
  - RESPIRATORY FAILURE [None]
